FAERS Safety Report 18941912 (Version 1)
Quarter: 2021Q1

REPORT INFORMATION
  Report Type: Spontaneous
  Country: US (occurrence: US)
  Receive Date: 20210225
  Receipt Date: 20210225
  Transmission Date: 20210420
  Serious: Yes (Death, Hospitalization)
  Sender: FDA-Public Use
  Company Number: US-TEVA-2021-US-1882871

PATIENT
  Age: 53 Year
  Sex: Male

DRUGS (12)
  1. DAUNOMYCIN [Suspect]
     Active Substance: DAUNORUBICIN
     Dosage: ADMITTED IN SEPTEMBER 2010 FOR HIS 2ND CYCLE OF CONSOLIDATION THERAPY WITH DAUNORUBICIN (128 MG) ...
     Route: 042
     Dates: start: 201009
  2. ALL?TRANS RETINOIC ACID [Suspect]
     Active Substance: TRETINOIN
     Dosage: ADMITTED IN AUGUST 2010 FOR THE FIRST CYCLE OF CONSOLIDATION THERAPY WITH ATRA, IDARUBICIN, AND C...
     Route: 065
     Dates: start: 201008
  3. CYTARABINE. [Suspect]
     Active Substance: CYTARABINE
     Dosage: FIRST DOSE OF PROPHYLACTIC INTRATHECAL CHEMOTHERAPY WITH METHOTREXATE, CYTARABINE, AND HYDROCORTI...
     Route: 037
     Dates: start: 201008
  4. HYDROCORTISONE. [Concomitant]
     Active Substance: HYDROCORTISONE
     Indication: ACUTE PROMYELOCYTIC LEUKAEMIA
     Dosage: RECEIVED HIS FIRST DOSE OF PROPHYLACTIC INTRATHECAL CHEMOTHERAPY WITH METHOTREXATE, CYTARABINE, A...
     Route: 037
     Dates: start: 201008
  5. DAUNOMYCIN [Suspect]
     Active Substance: DAUNORUBICIN
     Indication: ACUTE PROMYELOCYTIC LEUKAEMIA
     Dosage: INDUCTION THERAPY WITH ALL? TRANS RETINOIC ACID (ATRA), DAUNORUBICIN, AND CYTARABINE IN JUNE 2010...
     Route: 065
     Dates: start: 201006
  6. CYTARABINE. [Suspect]
     Active Substance: CYTARABINE
     Dosage: 1ST CYCLE OF CONSOLIDATION THERAPY
     Route: 065
     Dates: start: 201008
  7. CYTARABINE. [Suspect]
     Active Substance: CYTARABINE
     Dosage: ADMITTED IN SEPTEMBER 2010 FOR HIS SECOND CYCLE OF CONSOLIDATION THERAPY WITH DAUNORUBICIN AND HI...
     Route: 042
     Dates: start: 201009
  8. DAUNOMYCIN [Suspect]
     Active Substance: DAUNORUBICIN
     Dosage: INADVERTENTLY RECEIVED INTRATHECAL DAUNORUBICIN 93MG INSTEAD OF TRIPLE THERAPY WITH METHOTREXATE,...
     Route: 037
     Dates: start: 201009
  9. METHOTREXATE. [Concomitant]
     Active Substance: METHOTREXATE
     Indication: ACUTE PROMYELOCYTIC LEUKAEMIA
     Dosage: RECEIVED HIS FIRST DOSE OF PROPHYLACTIC INTRATHECAL CHEMOTHERAPY WITH METHOTREXATE, CYTARABINE, A...
     Route: 037
     Dates: start: 201008
  10. CYTARABINE. [Suspect]
     Active Substance: CYTARABINE
     Indication: ACUTE PROMYELOCYTIC LEUKAEMIA
     Dosage: INDUCTION THERAPY IN JUNE 2010; THIS DOSE WAS COMPLICATED BY NEUTROPENIC FEVER AND TYPHILITIS.
     Route: 065
     Dates: start: 201006
  11. ALL?TRANS RETINOIC ACID [Suspect]
     Active Substance: TRETINOIN
     Indication: ACUTE PROMYELOCYTIC LEUKAEMIA
     Dosage: INDUCTION THERAPY IN JUNE 2010; THIS DOSE WAS COMPLICATED BY NEUTROPENIC FEVER AND TYPHILITIS
     Route: 065
     Dates: start: 201006
  12. IDARUBICIN [Concomitant]
     Active Substance: IDARUBICIN
     Indication: ACUTE PROMYELOCYTIC LEUKAEMIA
     Dosage: THE PATIENT WAS SUBSEQUENTLY ADMITTED IN AUGUST 2010 FOR THE FIRST CYCLE OF CONSOLIDATION THERAPY...
     Route: 065
     Dates: start: 201008

REACTIONS (8)
  - Myelopathy [Fatal]
  - Incorrect route of product administration [Unknown]
  - Colitis [Unknown]
  - Encephalomyelitis [Fatal]
  - Coma [Not Recovered/Not Resolved]
  - Febrile neutropenia [Unknown]
  - Cranial nerve disorder [Fatal]
  - Mental impairment [Fatal]

NARRATIVE: CASE EVENT DATE: 2010
